FAERS Safety Report 11307705 (Version 3)
Quarter: 2015Q3

REPORT INFORMATION
  Report Type: Report from Study
  Country: FR (occurrence: FR)
  Receive Date: 20150724
  Receipt Date: 20150915
  Transmission Date: 20151125
  Serious: Yes (Death, Hospitalization)
  Sender: FDA-Public Use
  Company Number: FR-ROCHE-1606157

PATIENT
  Age: 70 Year
  Sex: Female
  Weight: 55 kg

DRUGS (15)
  1. VEMURAFENIB [Suspect]
     Active Substance: VEMURAFENIB
     Indication: LUNG NEOPLASM MALIGNANT
     Dosage: LAST DOSE PRIOR TO SAE 22/JUN/2015 (1920 MG)?960 MG X 2
     Route: 065
     Dates: start: 20150519, end: 20150624
  2. OXYCONTIN [Concomitant]
     Active Substance: OXYCODONE HYDROCHLORIDE
     Route: 065
  3. CORTANCYL [Concomitant]
     Active Substance: PREDNISONE
     Route: 065
  4. VEMURAFENIB [Suspect]
     Active Substance: VEMURAFENIB
     Route: 065
     Dates: start: 20150702
  5. TRIFLUCAN [Concomitant]
     Active Substance: FLUCONAZOLE
     Route: 065
  6. VEMURAFENIB [Suspect]
     Active Substance: VEMURAFENIB
     Route: 065
     Dates: start: 20150715
  7. CORTANCYL [Concomitant]
     Active Substance: PREDNISONE
     Dosage: OVER 5 DAYS
     Route: 065
  8. VEMURAFENIB [Suspect]
     Active Substance: VEMURAFENIB
     Route: 065
     Dates: start: 20150713
  9. OXYCONTIN [Concomitant]
     Active Substance: OXYCODONE HYDROCHLORIDE
     Indication: PAIN
  10. XANAX [Concomitant]
     Active Substance: ALPRAZOLAM
     Route: 065
  11. OXYNORM [Concomitant]
     Active Substance: OXYCODONE HYDROCHLORIDE
     Route: 065
  12. ZOLEDRONIC ACID [Suspect]
     Active Substance: ZOLEDRONIC ACID
     Indication: METASTASES TO BONE
     Route: 065
     Dates: start: 20150520, end: 20150520
  13. INEXIUM [Concomitant]
     Active Substance: ESOMEPRAZOLE
     Route: 065
  14. PARACETAMOL [Concomitant]
     Active Substance: ACETAMINOPHEN
  15. OXYCONTIN [Concomitant]
     Active Substance: OXYCODONE HYDROCHLORIDE
     Route: 065

REACTIONS (2)
  - Disease progression [Fatal]
  - Acute kidney injury [Recovered/Resolved with Sequelae]

NARRATIVE: CASE EVENT DATE: 20150622
